FAERS Safety Report 6744547-1 (Version None)
Quarter: 2010Q2

REPORT INFORMATION
  Report Type: 
  Country: None (occurrence: None)
  Receive Date: 20100527
  Receipt Date: 20100519
  Transmission Date: 20101027
  Serious: Yes (Other)
  Sender: FDA-Public Use
  Company Number: DE-ELI_LILLY_AND_COMPANY-DE201005005084

PATIENT
  Sex: Female

DRUGS (1)
  1. BYETTA [Suspect]
     Dosage: 5 UG, UNKNOWN
     Route: 058
     Dates: start: 20090101, end: 20090101

REACTIONS (1)
  - APPENDICITIS [None]
